FAERS Safety Report 5752981-1 (Version None)
Quarter: 2008Q2

REPORT INFORMATION
  Report Type: 
  Country: None (occurrence: None)
  Receive Date: 20080527
  Receipt Date: 20080515
  Transmission Date: 20081010
  Serious: Yes (Hospitalization)
  Sender: FDA-Public Use
  Company Number: 008-C5013-08021363

PATIENT
  Age: 67 Year
  Sex: Male

DRUGS (5)
  1. CC-5013 (LENALIDOMIDE) (CAPSULES) [Suspect]
     Indication: MULTIPLE MYELOMA
     Dosage: ORAL; 25 MG, DAILY, ORAL
     Route: 048
     Dates: start: 20071029, end: 20080221
  2. CC-5013 (LENALIDOMIDE) (CAPSULES) [Suspect]
     Indication: MULTIPLE MYELOMA
     Dosage: ORAL; 25 MG, DAILY, ORAL
     Route: 048
     Dates: start: 20080225
  3. DEXAMETHASONE [Suspect]
     Indication: MULTIPLE MYELOMA
     Dosage: ORAL, ORAL
     Route: 048
     Dates: start: 20071029, end: 20080221
  4. DEXAMETHASONE [Suspect]
     Indication: MULTIPLE MYELOMA
     Dosage: ORAL, ORAL
     Route: 048
     Dates: start: 20080225
  5. KEFLEX [Concomitant]

REACTIONS (4)
  - ANAEMIA [None]
  - CELLULITIS [None]
  - PURPURA [None]
  - VASCULITIS [None]
